FAERS Safety Report 4341711-6 (Version None)
Quarter: 2004Q2

REPORT INFORMATION
  Report Type: 
  Country: None (occurrence: None)
  Receive Date: 20040420
  Receipt Date: 20040407
  Transmission Date: 20050107
  Serious: Yes (Hospitalization)
  Sender: FDA-Public Use
  Company Number: PHRM2004FR01464

PATIENT
  Age: 72 Year
  Sex: Female
  Weight: 52 kg

DRUGS (3)
  1. VISKEN [Suspect]
     Dosage: 5 MG/DAY
     Route: 048
  2. LEVOTHYROXINE SODIUM [Suspect]
     Dosage: 100 A?G/DAY
     Route: 048
  3. TAMOXIFEN CITRATE [Suspect]
     Indication: BREAST CANCER
     Dosage: 20 MG, QD
     Route: 048

REACTIONS (1)
  - PHLEBITIS [None]
